FAERS Safety Report 12509181 (Version 1)
Quarter: 2016Q2

REPORT INFORMATION
  Report Type: Spontaneous
  Country: HK (occurrence: HK)
  Receive Date: 20160629
  Receipt Date: 20160629
  Transmission Date: 20160815
  Serious: Yes (Life-Threatening, Hospitalization, Other)
  Sender: FDA-Public Use
  Company Number: HK-ASTRAZENECA-2016SE68230

PATIENT
  Sex: Female
  Weight: 55.6 kg

DRUGS (1)
  1. OLAPARIB [Suspect]
     Active Substance: OLAPARIB
     Route: 048
     Dates: end: 20160615

REACTIONS (3)
  - Disease progression [Recovered/Resolved]
  - Intestinal obstruction [Unknown]
  - Ascites [Unknown]

NARRATIVE: CASE EVENT DATE: 20160615
